FAERS Safety Report 24651291 (Version 1)
Quarter: 2024Q4

REPORT INFORMATION
  Report Type: Spontaneous
  Country: US (occurrence: US)
  Receive Date: 20241122
  Receipt Date: 20241122
  Transmission Date: 20250115
  Serious: No
  Sender: ALVOGEN
  Company Number: US-ALVOGEN-2024095504

PATIENT
  Sex: Female

DRUGS (2)
  1. TERIPARATIDE [Suspect]
     Active Substance: TERIPARATIDE
     Indication: Osteoarthritis
     Dosage: EXPIRATION DATE: 30-JUN-2025, STRENGTH: 250MCG/ML
     Route: 058
     Dates: start: 202309
  2. TERIPARATIDE [Suspect]
     Active Substance: TERIPARATIDE
     Indication: Osteoarthritis
     Dosage: STRENGTH: 250MCG/ML
     Route: 058
     Dates: start: 202310

REACTIONS (7)
  - Headache [Recovered/Resolved]
  - Device malfunction [Unknown]
  - Device operational issue [Unknown]
  - Needle issue [Unknown]
  - Extra dose administered [Unknown]
  - Off label use [Unknown]
  - Drug effective for unapproved indication [Unknown]

NARRATIVE: CASE EVENT DATE: 20240101
